FAERS Safety Report 8430811-7 (Version None)
Quarter: 2012Q2

REPORT INFORMATION
  Report Type: 
  Country: None (occurrence: None)
  Receive Date: 20120612
  Receipt Date: 20120531
  Transmission Date: 20120825
  Serious: Yes (Hospitalization, Other)
  Sender: FDA-Public Use
  Company Number: GB-ROCHE-766665

PATIENT
  Sex: Female
  Weight: 78 kg

DRUGS (5)
  1. MABTHERA [Suspect]
     Indication: RHEUMATOID ARTHRITIS
     Route: 065
  2. METHOTREXATE [Concomitant]
  3. HYDROXYCHLOROQUINE SULFATE [Concomitant]
  4. MABTHERA [Suspect]
  5. MABTHERA [Suspect]
     Dosage: LAST DOSE PRIOR TO SAE 05/JAN/2010
     Dates: start: 20090122, end: 20100105

REACTIONS (4)
  - PERICARDITIS [None]
  - PREGNANCY [None]
  - NO ADVERSE EVENT [None]
  - SYSTEMIC LUPUS ERYTHEMATOSUS [None]
